FAERS Safety Report 6416919-6 (Version None)
Quarter: 2009Q4

REPORT INFORMATION
  Report Type: 
  Country: None (occurrence: None)
  Receive Date: 20091023
  Receipt Date: 20091020
  Transmission Date: 20100525
  Serious: Yes (Other)
  Sender: FDA-Public Use
  Company Number: 2009SP031446

PATIENT
  Age: 45 Year
  Sex: Female

DRUGS (1)
  1. CLARITIN [Suspect]
     Dosage: PO
     Route: 048
     Dates: start: 20080101, end: 20090701

REACTIONS (1)
  - HEPATITIS ACUTE [None]
